FAERS Safety Report 7933699-3 (Version None)
Quarter: 2011Q4

REPORT INFORMATION
  Report Type: 
  Country: None (occurrence: None)
  Receive Date: 20111122
  Receipt Date: 20111115
  Transmission Date: 20120403
  Serious: Yes (Hospitalization, Other)
  Sender: FDA-Public Use
  Company Number: PHHY2008CA13034

PATIENT
  Sex: Male

DRUGS (6)
  1. CLOZARIL [Suspect]
     Dates: start: 20110526
  2. CLOZARIL [Suspect]
     Route: 048
     Dates: start: 20080403, end: 20090505
  3. CLOZARIL [Suspect]
     Dosage: 3500 MG, ONCE/SINGLE
     Dates: start: 20080702
  4. CLOZARIL [Suspect]
     Dosage: 20X100 MG TABLETS
  5. COCAINE [Concomitant]
  6. VALPROATE SODIUM [Concomitant]
     Dosage: 2 G

REACTIONS (4)
  - INTENTIONAL OVERDOSE [None]
  - WHITE BLOOD CELL COUNT [None]
  - VOMITING [None]
  - DRUG INEFFECTIVE [None]
